FAERS Safety Report 8070641-1 (Version None)
Quarter: 2012Q1

REPORT INFORMATION
  Report Type: 
  Country: None (occurrence: None)
  Receive Date: 20120125
  Receipt Date: 20120112
  Transmission Date: 20120608
  Serious: Yes (Hospitalization, Other)
  Sender: FDA-Public Use
  Company Number: PHHY2009CA57779

PATIENT
  Sex: Female

DRUGS (14)
  1. SANDOSTATIN LAR [Suspect]
     Dosage: 40 MG EVERY 2 WEEKS
  2. SYNTHROID [Concomitant]
     Dates: start: 20110611
  3. SANDOSTATIN LAR [Suspect]
     Indication: CARCINOID TUMOUR OF THE GASTROINTESTINAL TRACT
     Dosage: 20 MG, QMO
     Route: 030
     Dates: start: 20070423, end: 20101206
  4. SANDOSTATIN LAR [Suspect]
     Dosage: 40 MG, QW3
     Route: 030
  5. SANDOSTATIN LAR [Suspect]
     Dosage: 40 MG, EVERY 3 WEEKS
     Route: 030
  6. SANDOSTATIN LAR [Suspect]
     Dosage: 30 MG, ONCE A MONTH
     Route: 030
  7. SANDOSTATIN LAR [Suspect]
     Dosage: 30 MG, QW2
     Route: 030
  8. RAMIPRIL [Concomitant]
  9. SANDOSTATIN LAR [Suspect]
     Indication: CARCINOID TUMOUR
     Dosage: 30 MG, QW3
     Route: 030
     Dates: start: 20070503
  10. SANDOSTATIN LAR [Suspect]
     Dosage: 40 MG, QW2
     Route: 030
     Dates: start: 20070503
  11. SANDOSTATIN LAR [Suspect]
     Dosage: 30 MG EVERY 2 WEEKS
     Route: 030
  12. SANDOSTATIN LAR [Suspect]
     Dosage: 40 MG, EVERY 3 WEEKS
     Route: 030
     Dates: start: 20100726, end: 20100803
  13. VIOKASE 16 [Concomitant]
     Dosage: 1 DF, TID
     Dates: start: 20110714
  14. SANDOSTATIN LAR [Suspect]
     Dosage: 30 MG, QW2
     Route: 030

REACTIONS (24)
  - PAIN [None]
  - WEIGHT DECREASED [None]
  - FLATULENCE [None]
  - HYPERTENSION [None]
  - NAUSEA [None]
  - BACK PAIN [None]
  - ROAD TRAFFIC ACCIDENT [None]
  - CHEST PAIN [None]
  - NASOPHARYNGITIS [None]
  - MUSCLE MASS [None]
  - DIARRHOEA [None]
  - FOOT FRACTURE [None]
  - ABDOMINAL DISTENSION [None]
  - VOMITING [None]
  - GASTROINTESTINAL OBSTRUCTION [None]
  - HEART RATE INCREASED [None]
  - ARTERIAL OCCLUSIVE DISEASE [None]
  - SENSATION OF HEAVINESS [None]
  - ABDOMINAL PAIN [None]
  - NASAL CONGESTION [None]
  - PAIN IN EXTREMITY [None]
  - PALPITATIONS [None]
  - RHINORRHOEA [None]
  - ABNORMAL FAECES [None]
